FAERS Safety Report 7907054-6 (Version None)
Quarter: 2011Q4

REPORT INFORMATION
  Report Type: 
  Country: None (occurrence: None)
  Receive Date: 20111110
  Receipt Date: 20111028
  Transmission Date: 20120403
  Serious: Yes (Hospitalization)
  Sender: FDA-Public Use
  Company Number: JP-EISAI INC-E2020-03688-CLI-JP

PATIENT
  Sex: Male
  Weight: 56 kg

DRUGS (12)
  1. BISOPROLOL FUMARATE [Concomitant]
     Route: 048
  2. RABEPRAZOLE SODIUM [Concomitant]
     Route: 048
     Dates: start: 20090418
  3. TORSEMIDE [Concomitant]
     Route: 048
     Dates: start: 20100420
  4. ARICEPT [Suspect]
     Dosage: COMMERCIAL ARICEPT 5 MG DAILY
     Route: 048
     Dates: start: 20081114
  5. TANATRIL [Concomitant]
     Route: 048
     Dates: start: 20090909
  6. PLETAL [Concomitant]
     Route: 048
     Dates: start: 20070511, end: 20110830
  7. PRADAXA [Concomitant]
     Route: 048
     Dates: start: 20110301
  8. ARICEPT [Suspect]
     Indication: DEMENTIA ALZHEIMER'S TYPE
     Route: 048
     Dates: start: 20080318, end: 20081113
  9. SUCRALFATE [Concomitant]
     Route: 048
     Dates: start: 20090418
  10. LASIX [Concomitant]
     Route: 048
     Dates: start: 20090616, end: 20110830
  11. WARFARIN SODIUM [Concomitant]
     Route: 048
     Dates: start: 20070511, end: 20110830
  12. MEXITIL [Concomitant]
     Route: 048
     Dates: start: 20070511

REACTIONS (2)
  - ANAEMIA [None]
  - GAZE PALSY [None]
